FAERS Safety Report 5070355-6 (Version None)
Quarter: 2006Q3

REPORT INFORMATION
  Report Type: 
  Country: None (occurrence: None)
  Receive Date: 20060731
  Receipt Date: 20060724
  Transmission Date: 20061208
  Serious: Yes (Hospitalization)
  Sender: FDA-Public Use
  Company Number: 200610962BVD

PATIENT
  Age: 65 Year
  Sex: Male
  Weight: 76 kg

DRUGS (7)
  1. SORAFENIB [Suspect]
     Indication: RENAL CELL CARCINOMA STAGE UNSPECIFIED
     Dosage: BID; ORAL , 400MG, BID; ORAL
     Route: 048
     Dates: start: 20051221
  2. SORAFENIB [Suspect]
     Indication: RENAL CELL CARCINOMA STAGE UNSPECIFIED
     Dosage: BID; ORAL , 400MG, BID; ORAL
     Route: 048
     Dates: start: 20060717
  3. ALLOPURINOL [Concomitant]
  4. ZOMETA [Concomitant]
  5. TRYASOL [Concomitant]
  6. METOPROLOL TARTRATE [Concomitant]
  7. LOPERAMID [Concomitant]

REACTIONS (2)
  - CHOLECYSTITIS [None]
  - CHOLELITHIASIS [None]
